FAERS Safety Report 6213398-9 (Version None)
Quarter: 2009Q2

REPORT INFORMATION
  Report Type: 
  Country: None (occurrence: None)
  Receive Date: 20090601
  Receipt Date: 20090519
  Transmission Date: 20091009
  Serious: Yes (Hospitalization)
  Sender: FDA-Public Use
  Company Number: POMP-1000551

PATIENT
  Age: 7 Month
  Sex: Male
  Weight: 6.6 kg

DRUGS (1)
  1. MYOZYME [Suspect]
     Indication: GLYCOGEN STORAGE DISEASE TYPE II
     Dosage: 100 MG, Q2W, INTRAVENOUS
     Route: 042
     Dates: start: 20090123

REACTIONS (6)
  - COLLAPSE OF LUNG [None]
  - EJECTION FRACTION DECREASED [None]
  - INCREASED UPPER AIRWAY SECRETION [None]
  - LUNG CONSOLIDATION [None]
  - PNEUMONIA [None]
  - RESPIRATORY FAILURE [None]
